FAERS Safety Report 12642829 (Version 2)
Quarter: 2016Q4

REPORT INFORMATION
  Report Type: Spontaneous
  Country: US (occurrence: US)
  Receive Date: 20160811
  Receipt Date: 20161010
  Transmission Date: 20170207
  Serious: Yes (Hospitalization)
  Sender: FDA-Public Use
  Company Number: US-BEH-2016072048

PATIENT
  Age: 65 Year
  Sex: Male
  Weight: 114.29 kg

DRUGS (1)
  1. HIZENTRA [Suspect]
     Active Substance: HUMAN IMMUNOGLOBULIN G
     Indication: IMMUNODEFICIENCY COMMON VARIABLE
     Dosage: 13 G, QW
     Route: 058
     Dates: start: 20120117

REACTIONS (2)
  - Renal tumour excision [Unknown]
  - Renal mass [Unknown]

NARRATIVE: CASE EVENT DATE: 2016
